FAERS Safety Report 6300060-7 (Version None)
Quarter: 2009Q3

REPORT INFORMATION
  Report Type: 
  Country: None (occurrence: None)
  Receive Date: 20090806
  Receipt Date: 20090728
  Transmission Date: 20100115
  Serious: Yes (Death, Other)
  Sender: FDA-Public Use
  Company Number: MX-ELI_LILLY_AND_COMPANY-MX200907006692

PATIENT
  Age: 38 Year
  Sex: Female

DRUGS (3)
  1. OLANZAPINE + FLUOXETINE HCL [Suspect]
     Indication: SCHIZOPHRENIA, PARANOID TYPE
     Dosage: UNK, DAILY (1/D)
     Route: 048
     Dates: start: 20090701
  2. LAMICTAL [Concomitant]
     Indication: MOOD SWINGS
     Dosage: UNK, UNKNOWN
     Route: 065
  3. SINOGAN [Concomitant]
     Indication: SLEEP DISORDER
     Dosage: UNK, UNKNOWN
     Route: 065

REACTIONS (3)
  - COMPLETED SUICIDE [None]
  - OFF LABEL USE [None]
  - SUICIDAL IDEATION [None]
